FAERS Safety Report 17100992 (Version 1)
Quarter: 2019Q4

REPORT INFORMATION
  Report Type: Spontaneous
  Country: FR (occurrence: FR)
  Receive Date: 20191202
  Receipt Date: 20191202
  Transmission Date: 20200122
  Serious: Yes (Other)
  Sender: FDA-Public Use
  Company Number: FR-MYLANLABS-2019M1100257

PATIENT
  Age: 3 Year
  Sex: Female
  Weight: 16.7 kg

DRUGS (1)
  1. VANCOMYCINE MYLAN 250 MG, POUDRE POUR SOLUTION POUR PERFUSION (IV) [Suspect]
     Active Substance: VANCOMYCIN
     Indication: PRODUCT USED FOR UNKNOWN INDICATION
     Dosage: 200 MILLIGRAM, TOTAL
     Route: 042
     Dates: start: 20190607, end: 20190607

REACTIONS (7)
  - Pruritus [Recovered/Resolved]
  - Product administration error [Recovered/Resolved]
  - Headache [Recovered/Resolved]
  - Injection related reaction [Recovered/Resolved]
  - Vomiting [Recovered/Resolved]
  - Dose calculation error [Recovered/Resolved]
  - Hypotension [Recovered/Resolved]

NARRATIVE: CASE EVENT DATE: 20190607
